FAERS Safety Report 17282125 (Version 2)
Quarter: 2020Q1

REPORT INFORMATION
  Report Type: Spontaneous
  Country: FR (occurrence: FR)
  Receive Date: 20200117
  Receipt Date: 20200128
  Transmission Date: 20200409
  Serious: Yes (Other)
  Sender: FDA-Public Use
  Company Number: FR-TEVA-2020-FR-1171431

PATIENT
  Sex: Male

DRUGS (1)
  1. COTRIMOXAZOLE [Suspect]
     Active Substance: SULFAMETHOXAZOLE\TRIMETHOPRIM
     Route: 048
     Dates: end: 20200109

REACTIONS (4)
  - Choking [Recovered/Resolved]
  - Foreign body in respiratory tract [Recovered/Resolved]
  - Product use complaint [Unknown]
  - Product physical issue [Unknown]

NARRATIVE: CASE EVENT DATE: 20191209
